FAERS Safety Report 19457655 (Version 1)
Quarter: 2021Q2

REPORT INFORMATION
  Report Type: Spontaneous
  Country: IE (occurrence: IE)
  Receive Date: 20210624
  Receipt Date: 20210624
  Transmission Date: 20210717
  Serious: Yes (Hospitalization, Other)
  Sender: FDA-Public Use
  Company Number: IE-SUN PHARMACEUTICAL INDUSTRIES LTD-2021R1-301474

PATIENT
  Age: 56 Year
  Sex: Male

DRUGS (8)
  1. PREDNISOLONE. [Suspect]
     Active Substance: PREDNISOLONE
     Indication: RASH
     Dosage: UNK
     Route: 065
  2. PROMETHAZINE [Suspect]
     Active Substance: PROMETHAZINE HYDROCHLORIDE
     Indication: RASH
     Dosage: UNK
     Route: 065
  3. TINZAPARINE [Suspect]
     Active Substance: TINZAPARIN
     Indication: ANTICOAGULANT THERAPY
     Dosage: 16000 UNITS , UNK
     Route: 065
  4. WARFARIN [Suspect]
     Active Substance: WARFARIN
     Indication: EMBOLISM
  5. HEPARIN [Suspect]
     Active Substance: HEPARIN SODIUM
     Indication: PRODUCT USED FOR UNKNOWN INDICATION
     Dosage: UNK
     Route: 065
  6. ATORVASTATIN [Concomitant]
     Active Substance: ATORVASTATIN
     Indication: PRODUCT USED FOR UNKNOWN INDICATION
     Dosage: UNK
     Route: 065
  7. OMEPRAZOLE. [Concomitant]
     Active Substance: OMEPRAZOLE
     Indication: PRODUCT USED FOR UNKNOWN INDICATION
     Dosage: UNK
     Route: 065
  8. WARFARIN [Suspect]
     Active Substance: WARFARIN
     Indication: THROMBOSIS
     Dosage: UNK
     Route: 065

REACTIONS (2)
  - Priapism [Unknown]
  - Rash [Not Recovered/Not Resolved]
